FAERS Safety Report 5194654-2 (Version None)
Quarter: 2006Q4

REPORT INFORMATION
  Report Type: 
  Country: None (occurrence: None)
  Receive Date: 20061222
  Receipt Date: 20061222
  Transmission Date: 20070319
  Serious: No
  Sender: FDA-Public Use
  Company Number: None

PATIENT
  Age: 54 Year
  Sex: Female
  Weight: 71.4 kg

DRUGS (3)
  1. METHOTREXATE [Suspect]
     Dosage: 360 MG X 1  IV;  1440MG CONT. INFUS.  IV
     Route: 042
     Dates: start: 20061201
  2. METHOTREXATE [Suspect]
     Dosage: 360 MG X 1  IV;  1440MG CONT. INFUS.  IV
     Route: 042
     Dates: start: 20061202
  3. CYTARABINE [Suspect]
     Dosage: CYTARABINE 4 DOSES   IV
     Route: 042
     Dates: start: 20061203

REACTIONS (3)
  - BODY TEMPERATURE INCREASED [None]
  - RASH [None]
  - WHITE BLOOD CELL COUNT INCREASED [None]
